FAERS Safety Report 7606184-6 (Version None)
Quarter: 2011Q3

REPORT INFORMATION
  Report Type: 
  Country: None (occurrence: None)
  Receive Date: 20110713
  Receipt Date: 20110705
  Transmission Date: 20111222
  Serious: Yes (Hospitalization)
  Sender: FDA-Public Use
  Company Number: TR-SANOFI-AVENTIS-2011SA039144

PATIENT
  Age: 74 Year
  Sex: Male
  Weight: 78 kg

DRUGS (7)
  1. CABAZITAXEL [Suspect]
     Indication: PROSTATE CANCER
     Route: 042
     Dates: start: 20110510, end: 20110510
  2. METOPROLOL SUCCINATE [Concomitant]
  3. FRAXIPARIN [Concomitant]
  4. PREDNISOLONE [Suspect]
     Indication: PROSTATE CANCER
     Route: 048
     Dates: start: 20110510
  5. ATORVASTATIN [Concomitant]
  6. ASPIRIN [Concomitant]
  7. CABAZITAXEL [Suspect]
     Route: 042
     Dates: start: 20110531, end: 20110531

REACTIONS (1)
  - ACUTE MYOCARDIAL INFARCTION [None]
